FAERS Safety Report 20369796 (Version 1)
Quarter: 2022Q1

REPORT INFORMATION
  Report Type: Spontaneous
  Country: US (occurrence: US)
  Receive Date: 20220124
  Receipt Date: 20220124
  Transmission Date: 20220424
  Serious: No
  Sender: FDA-Public Use
  Company Number: US-GW PHARMA-202201USGW00273

PATIENT

DRUGS (1)
  1. EPIDIOLEX [Suspect]
     Active Substance: CANNABIDIOL
     Indication: Epilepsy
     Dosage: 150 MILLIGRAM, BID (50 MILLIGRAM IF NEEDED FOR BREAKTHROUGH SEIZURE)
     Route: 048
     Dates: start: 20190130

REACTIONS (1)
  - Weight decreased [Unknown]
